FAERS Safety Report 10027098 (Version 1)
Quarter: 2014Q1

REPORT INFORMATION
  Report Type: Spontaneous
  Country: US (occurrence: US)
  Receive Date: 20140321
  Receipt Date: 20140321
  Transmission Date: 20141002
  Serious: No
  Sender: FDA-Public Use
  Company Number: US-MYLANLABS-2013S1006292

PATIENT
  Age: 50 Year
  Sex: Female
  Weight: 58.51 kg

DRUGS (2)
  1. ESTRADIOL TRANSDERMAL SYSTEM, USP [Suspect]
     Indication: HORMONE REPLACEMENT THERAPY
     Dosage: QW
     Route: 062
     Dates: start: 20130310
  2. NEXIUM [Concomitant]

REACTIONS (1)
  - Application site erythema [Not Recovered/Not Resolved]
